FAERS Safety Report 7834771-9 (Version None)
Quarter: 2011Q4

REPORT INFORMATION
  Report Type: 
  Country: None (occurrence: None)
  Receive Date: 20111024
  Receipt Date: 20111015
  Transmission Date: 20120403
  Serious: Yes (Hospitalization, Other)
  Sender: FDA-Public Use
  Company Number: ES-JNJFOC-20111008641

PATIENT
  Age: 73 Year
  Sex: Male

DRUGS (3)
  1. METAMIZOLE [Concomitant]
     Indication: BACK PAIN
     Route: 065
  2. PREGABALIN [Concomitant]
     Indication: BACK PAIN
     Route: 065
  3. FENTANYL [Suspect]
     Indication: BACK PAIN
     Route: 062

REACTIONS (3)
  - URINARY INCONTINENCE [None]
  - MUSCULAR WEAKNESS [None]
  - INADEQUATE ANALGESIA [None]
